FAERS Safety Report 15066564 (Version 2)
Quarter: 2018Q3

REPORT INFORMATION
  Report Type: Spontaneous
  Country: RO (occurrence: RO)
  Receive Date: 20180626
  Receipt Date: 20180726
  Transmission Date: 20181010
  Serious: Yes (Death, Hospitalization)
  Sender: FDA-Public Use
  Company Number: RO-PFIZER INC-2018251939

PATIENT
  Sex: Female

DRUGS (2)
  1. SUTENT [Suspect]
     Active Substance: SUNITINIB MALATE
     Indication: METASTATIC RENAL CELL CARCINOMA
     Dosage: 37.5 MG, CYCLIC, 4 WEEKS ON TREATMENT WITH 2 WEEKS OFF
     Dates: start: 201508
  2. FENTANIL [Concomitant]
     Active Substance: FENTANYL
     Dosage: UNK

REACTIONS (5)
  - Second primary malignancy [Fatal]
  - Goitre [Unknown]
  - Lymphadenopathy mediastinal [Unknown]
  - Blood thyroid stimulating hormone increased [Unknown]
  - Anaplastic thyroid cancer [Fatal]

NARRATIVE: CASE EVENT DATE: 20170512
